FAERS Safety Report 25461412 (Version 1)
Quarter: 2025Q2

REPORT INFORMATION
  Report Type: Report from Study
  Country: US (occurrence: US)
  Receive Date: 20250620
  Receipt Date: 20250620
  Transmission Date: 20250716
  Serious: Yes (Hospitalization)
  Sender: EISAI
  Company Number: US-Eisai-EC-2025-191557

PATIENT
  Age: 73 Year
  Sex: Male

DRUGS (13)
  1. LENVIMA [Suspect]
     Active Substance: LENVATINIB
     Indication: Renal cancer
     Dates: start: 20240905, end: 2024
  2. LENVIMA [Suspect]
     Active Substance: LENVATINIB
     Dates: start: 2024
  3. LENVIMA [Suspect]
     Active Substance: LENVATINIB
     Dates: end: 202506
  4. LENVIMA [Suspect]
     Active Substance: LENVATINIB
     Dates: start: 20250612
  5. PREDNISONE [Concomitant]
     Active Substance: PREDNISONE
  6. TRIAMCINOLONE ACETONIDE EXTERNAL [Concomitant]
  7. AMLODIPINE BESYLATE [Concomitant]
     Active Substance: AMLODIPINE BESYLATE
  8. ASPIRIN [Concomitant]
     Active Substance: ASPIRIN
  9. ATORVASTATIN CALCIUM [Concomitant]
     Active Substance: ATORVASTATIN CALCIUM
  10. CLOBETASOL PROPIONATE EXTERNAL [Concomitant]
  11. KEYTRUDA [Concomitant]
     Active Substance: PEMBROLIZUMAB
  12. MEGESTROL ACETATE [Concomitant]
     Active Substance: MEGESTROL ACETATE
  13. METOPROLOL SUCCINATE [Concomitant]
     Active Substance: METOPROLOL SUCCINATE

REACTIONS (1)
  - Pneumonia [Recovered/Resolved]

NARRATIVE: CASE EVENT DATE: 20250601
